FAERS Safety Report 4980303-2 (Version None)
Quarter: 2006Q2

REPORT INFORMATION
  Report Type: 
  Country: None (occurrence: None)
  Receive Date: 20060424
  Receipt Date: 20060413
  Transmission Date: 20061013
  Serious: Yes (Other)
  Sender: FDA-Public Use
  Company Number: ZA-ABBOTT-06P-143-0330682-00

PATIENT
  Age: 6 Year
  Sex: Male

DRUGS (1)
  1. ULTANE [Suspect]
     Indication: INDUCTION OF ANAESTHESIA

REACTIONS (1)
  - GRAND MAL CONVULSION [None]
